FAERS Safety Report 8199143-9 (Version None)
Quarter: 2012Q1

REPORT INFORMATION
  Report Type: 
  Country: None (occurrence: None)
  Receive Date: 20120309
  Receipt Date: 20120305
  Transmission Date: 20120608
  Serious: Yes (Other)
  Sender: FDA-Public Use
  Company Number: AU-JHP PHARMACEUTICALS, LLC-JHP201200146

PATIENT
  Age: 61 Year
  Sex: Male
  Weight: 70 kg

DRUGS (8)
  1. ATORVASTATIN [Concomitant]
  2. EZETIMIBE [Concomitant]
  3. FLECAINIDE ACETATE [Concomitant]
  4. DIAZEPAM [Concomitant]
  5. PHENELZINE [Concomitant]
  6. TAMSULOSIN HCL [Concomitant]
  7. KETALAR [Suspect]
     Indication: MAJOR DEPRESSION
     Dosage: 300-600 MG DAILY (RACEMIC PREPARATION TAKEN IN 3 DIVIDED DOSES)
     Route: 048
  8. FUROSEMIDE [Concomitant]

REACTIONS (3)
  - OFF LABEL USE [None]
  - CORNEAL OEDEMA [None]
  - OCULAR TOXICITY [None]
